FAERS Safety Report 13923556 (Version 2)
Quarter: 2017Q3

REPORT INFORMATION
  Report Type: Spontaneous
  Country: AU (occurrence: AU)
  Receive Date: 20170831
  Receipt Date: 20170831
  Transmission Date: 20171127
  Serious: Yes (Life-Threatening, Hospitalization, Other)
  Sender: FDA-Public Use
  Company Number: AU-CIPLA LTD.-2017AU15237

PATIENT

DRUGS (11)
  1. AMLODIPINE [Suspect]
     Active Substance: AMLODIPINE BESYLATE
     Dosage: 290 MG, TOTAL DOSE
     Route: 048
  2. RAMIPRIL. [Suspect]
     Active Substance: RAMIPRIL
     Dosage: 100 MG, UNK
     Route: 048
  3. METHYLENE BLUE. [Suspect]
     Active Substance: METHYLENE BLUE
     Dosage: 1.5 MG/KG, BOLUS, 6.5 HOURS POSTINGESTION
     Route: 065
  4. VENLAFAXINE [Suspect]
     Active Substance: VENLAFAXINE HYDROCHLORIDE
     Dosage: 1.05 G, TOTAL DOSE,
     Route: 048
  5. LITHIUM. [Suspect]
     Active Substance: LITHIUM
     Dosage: UNK
     Route: 048
  6. FLUOXETINE [Suspect]
     Active Substance: FLUOXETINE HYDROCHLORIDE
     Dosage: 560 MG, TOTAL DOSE
     Route: 048
  7. DESVENLAFAXINE. [Suspect]
     Active Substance: DESVENLAFAXINE
     Dosage: 5.6 G, TOTAL DOSE, EXTENDED RELEASE
     Route: 048
  8. PROMETHAZINE [Suspect]
     Active Substance: PROMETHAZINE\PROMETHAZINE HYDROCHLORIDE
     Dosage: 500 MG, TOTAL DOSE
     Route: 048
  9. QUETIAPINE. [Suspect]
     Active Substance: QUETIAPINE
     Dosage: 13.5 G, TOTAL DOSE, IMMEDIATE AND EXTENDED RELEASE
     Route: 048
  10. METHYLENE BLUE. [Suspect]
     Active Substance: METHYLENE BLUE
     Dosage: 1.5 MG/KG, PER HOUR, 6.5 HOURS POSTINGESTION
     Route: 065
  11. METHYLENE BLUE. [Suspect]
     Active Substance: METHYLENE BLUE
     Dosage: 0.75 MG/KG,  PER HOUR, 6.5 HOURS POSTINGESTION
     Route: 065

REACTIONS (4)
  - Serotonin syndrome [Recovered/Resolved]
  - Paralysis [Unknown]
  - Overdose [Recovered/Resolved]
  - Shock [Recovered/Resolved]
